FAERS Safety Report 17912748 (Version 2)
Quarter: 2020Q2

REPORT INFORMATION
  Report Type: Spontaneous
  Country: SI (occurrence: SI)
  Receive Date: 20200618
  Receipt Date: 20200629
  Transmission Date: 20200714
  Serious: Yes (Other)
  Sender: FDA-Public Use
  Company Number: SI-PFIZER INC-2020232433

PATIENT
  Age: 73 Year
  Sex: Female

DRUGS (15)
  1. IBRANCE [Suspect]
     Active Substance: PALBOCICLIB
     Dosage: UNK
     Route: 065
  2. AROMASIN [Suspect]
     Active Substance: EXEMESTANE
     Dosage: UNK
     Route: 065
  3. LOPACUT [Concomitant]
     Dosage: UNK
     Route: 065
  4. IBRANCE [Suspect]
     Active Substance: PALBOCICLIB
     Dosage: 75 MG, DAILY
     Route: 065
     Dates: start: 20190813
  5. IBRANCE [Suspect]
     Active Substance: PALBOCICLIB
     Dosage: 100 MG, DAILY
     Route: 065
     Dates: start: 20181220
  6. AFINITOR [Suspect]
     Active Substance: EVEROLIMUS
     Dosage: UNK
     Route: 065
     Dates: start: 20200228
  7. FULVESTRANT. [Suspect]
     Active Substance: FULVESTRANT
     Dosage: UNK
     Route: 065
     Dates: start: 20171002
  8. IBRANCE [Suspect]
     Active Substance: PALBOCICLIB
     Dosage: UNK
     Route: 065
  9. IBRANCE [Suspect]
     Active Substance: PALBOCICLIB
     Dosage: UNK
  10. SPASMEX [TROSPIUM CHLORIDE] [Suspect]
     Active Substance: TROSPIUM CHLORIDE
     Dosage: UNK
     Route: 065
     Dates: start: 20200117
  11. DENOSUMAB [Suspect]
     Active Substance: DENOSUMAB
     Dosage: UNK
     Route: 065
  12. IBRANCE [Suspect]
     Active Substance: PALBOCICLIB
     Dosage: 100 MG, DAILY
     Route: 065
     Dates: start: 20190315, end: 20190412
  13. IBRANCE [Suspect]
     Active Substance: PALBOCICLIB
     Dosage: 125 MG, DAILY
     Route: 065
     Dates: start: 20181108, end: 20181207
  14. IBRANCE [Suspect]
     Active Substance: PALBOCICLIB
     Dosage: 100 MG, DAILY
     Route: 065
     Dates: start: 20190705
  15. FEMARA [Suspect]
     Active Substance: LETROZOLE
     Dosage: UNK
     Route: 065

REACTIONS (20)
  - General physical health deterioration [Unknown]
  - Weight decreased [Unknown]
  - Frequent bowel movements [Unknown]
  - Hepatic lesion [Unknown]
  - Diarrhoea [Unknown]
  - Spinal compression fracture [Unknown]
  - Neoplasm progression [Unknown]
  - Productive cough [Unknown]
  - Spinal pain [Recovered/Resolved]
  - Neutropenia [Unknown]
  - Palpitations [Unknown]
  - Abdominal pain upper [Recovering/Resolving]
  - Aphthous ulcer [Unknown]
  - Acne [Unknown]
  - Fractured sacrum [Unknown]
  - Pyrexia [Unknown]
  - Decreased appetite [Unknown]
  - Abdominal pain [Unknown]
  - Rash [Unknown]
  - Bundle branch block left [Recovered/Resolved]
